FAERS Safety Report 5744297-4 (Version None)
Quarter: 2008Q2

REPORT INFORMATION
  Report Type: 
  Country: None (occurrence: None)
  Receive Date: 20080520
  Receipt Date: 20080515
  Transmission Date: 20081010
  Serious: Yes (Life-Threatening, Hospitalization, Other)
  Sender: FDA-Public Use
  Company Number: AU-AVENTIS-200813526GDDC

PATIENT
  Age: 72 Year
  Sex: Male

DRUGS (10)
  1. LANTUS [Suspect]
     Route: 058
     Dates: start: 20071105
  2. AUTOPEN INSULIN INJECTION PEN [Suspect]
  3. AVANDIA [Concomitant]
  4. AVAPRO [Concomitant]
  5. HYDROCHLOROTHIAZIDE [Concomitant]
  6. EFFEXOR [Concomitant]
  7. CADUET [Concomitant]
  8. DIABEX [Concomitant]
  9. ALLOPURINOL [Concomitant]
  10. EZETROL [Concomitant]

REACTIONS (1)
  - SEPSIS [None]
